FAERS Safety Report 11484950 (Version 1)
Quarter: 2015Q3

REPORT INFORMATION
  Report Type: Spontaneous
  Country: US (occurrence: US)
  Receive Date: 20150903
  Receipt Date: 20150903
  Transmission Date: 20151125
  Serious: No
  Sender: FDA-Public Use
  Company Number: US-ELI_LILLY_AND_COMPANY-US201209001178

PATIENT
  Sex: Female

DRUGS (1)
  1. CYMBALTA [Suspect]
     Active Substance: DULOXETINE HYDROCHLORIDE
     Indication: BIPOLAR I DISORDER
     Dosage: 60MG, A DAY
     Dates: start: 2010, end: 20120811

REACTIONS (4)
  - Drug withdrawal syndrome [Unknown]
  - Intentional product misuse [Unknown]
  - Cold sweat [Unknown]
  - Vomiting [Unknown]

NARRATIVE: CASE EVENT DATE: 20120811
